FAERS Safety Report 7982209-3 (Version None)
Quarter: 2011Q4

REPORT INFORMATION
  Report Type: 
  Country: None (occurrence: None)
  Receive Date: 20111215
  Receipt Date: 20111205
  Transmission Date: 20120403
  Serious: Yes (Hospitalization, Other)
  Sender: FDA-Public Use
  Company Number: US-ELI_LILLY_AND_COMPANY-US201112001363

PATIENT
  Sex: Female
  Weight: 100.68 kg

DRUGS (11)
  1. LISINOPRIL [Concomitant]
     Indication: HYPERTENSION
     Dosage: UNK UNK, QD
     Route: 048
  2. LANTUS [Concomitant]
  3. BYETTA [Suspect]
     Indication: TYPE 2 DIABETES MELLITUS
     Dosage: 5 UG, BID
     Route: 058
     Dates: start: 20110721, end: 20110801
  4. HYDROCHLOROTHIAZIDE [Concomitant]
     Indication: HYPERTENSION
     Dosage: UNK UNK, QD
     Route: 048
  5. VITAMIN D [Concomitant]
     Dosage: UNK, QD
  6. BYETTA [Suspect]
     Dosage: 10 UG, BID
     Route: 058
     Dates: start: 20110801
  7. GLIMEPIRIDE [Concomitant]
     Indication: TYPE 2 DIABETES MELLITUS
     Dosage: UNK UNK, QD
     Route: 048
  8. PRAVASTATIN [Concomitant]
     Dosage: UNK, QD
  9. PRAVACHOL [Concomitant]
     Indication: BLOOD CHOLESTEROL
     Dosage: UNK UNK, QD
     Route: 048
  10. SYNTHROID [Concomitant]
     Dosage: UNK UNK, QD
     Route: 048
  11. CALCIUM [Concomitant]
     Dosage: UNK UNK, QD
     Route: 048

REACTIONS (4)
  - LOSS OF CONSCIOUSNESS [None]
  - DIZZINESS [None]
  - FEELING ABNORMAL [None]
  - BLOOD GLUCOSE INCREASED [None]
